FAERS Safety Report 7743281-9 (Version None)
Quarter: 2011Q3

REPORT INFORMATION
  Report Type: 
  Country: None (occurrence: None)
  Receive Date: 20110819
  Receipt Date: 20110512
  Transmission Date: 20111222
  Serious: No
  Sender: FDA-Public Use
  Company Number: 033895

PATIENT
  Sex: Male
  Weight: 68.9 kg

DRUGS (3)
  1. LACOSAMIDE [Suspect]
     Indication: EPILEPSY
     Dosage: 50 MG QD ORAL; 100 MG QD, ORAL; 150 MG QD, 50MG X 3 ONCE AT HS ORAL
     Route: 048
     Dates: start: 20110101, end: 20110101
  2. LACOSAMIDE [Suspect]
     Indication: EPILEPSY
     Dosage: 50 MG QD ORAL; 100 MG QD, ORAL; 150 MG QD, 50MG X 3 ONCE AT HS ORAL
     Route: 048
     Dates: start: 20110101
  3. LACOSAMIDE [Suspect]
     Indication: EPILEPSY
     Dosage: 50 MG QD ORAL; 100 MG QD, ORAL; 150 MG QD, 50MG X 3 ONCE AT HS ORAL
     Route: 048
     Dates: start: 20110101, end: 20110101

REACTIONS (1)
  - BLOOD PRESSURE INCREASED [None]
